FAERS Safety Report 14845347 (Version 3)
Quarter: 2018Q2

REPORT INFORMATION
  Report Type: Report from Study
  Country: AT (occurrence: AT)
  Receive Date: 20180504
  Receipt Date: 20180605
  Transmission Date: 20180711
  Serious: Yes (Other)
  Sender: FDA-Public Use
  Company Number: AT-INCYTE CORPORATION-2016IN002147

PATIENT

DRUGS (5)
  1. JAKAVI [Suspect]
     Active Substance: RUXOLITINIB
     Indication: MYELOFIBROSIS
     Dosage: 40 MG, QD
     Route: 065
     Dates: start: 20131007, end: 20131007
  2. JAKAVI [Suspect]
     Active Substance: RUXOLITINIB
     Dosage: 20 MG, QD
     Route: 065
     Dates: start: 20140825, end: 20141123
  3. JAKAVI [Suspect]
     Active Substance: RUXOLITINIB
     Dosage: 50 MG, QD
     Route: 065
     Dates: start: 20131008, end: 20131013
  4. JAKAVI [Suspect]
     Active Substance: RUXOLITINIB
     Dosage: 40 MG, QD
     Route: 065
     Dates: start: 20131014, end: 20140824
  5. JAKAVI [Suspect]
     Active Substance: RUXOLITINIB
     Dosage: 30 MG, QD
     Route: 065
     Dates: start: 20141124

REACTIONS (17)
  - Basophil count increased [Unknown]
  - Hypertension [Unknown]
  - C-reactive protein increased [Unknown]
  - Thrombocytopenia [Not Recovered/Not Resolved]
  - Conjunctivitis [Recovered/Resolved]
  - Blood glucose increased [Unknown]
  - Basophil percentage increased [Unknown]
  - Red cell distribution width increased [Unknown]
  - Urinary tract infection [Recovered/Resolved]
  - Urinary tract infection [Recovered/Resolved]
  - Pneumonia [Recovered/Resolved]
  - Skin infection [Recovered/Resolved]
  - Rash [Recovered/Resolved]
  - Urinary tract infection [Recovered/Resolved]
  - Upper respiratory tract infection [Recovered/Resolved]
  - Urinary tract infection [Recovered/Resolved]
  - Urinary tract infection [Recovered/Resolved]

NARRATIVE: CASE EVENT DATE: 20140623
